FAERS Safety Report 4285801-5 (Version None)
Quarter: 2004Q1

REPORT INFORMATION
  Report Type: 
  Country: None (occurrence: None)
  Receive Date: 20040203
  Receipt Date: 20040121
  Transmission Date: 20041129
  Serious: Yes (Death, Other)
  Sender: FDA-Public Use
  Company Number: 2003040874

PATIENT
  Age: 89 Year
  Sex: Male

DRUGS (11)
  1. GEODON [Suspect]
     Indication: PSYCHOTIC DISORDER
     Dosage: 20 MG (DAILY), INTRAMUSCULAR
     Route: 030
     Dates: start: 20030323, end: 20030327
  2. PENTOBARBITAL CAP [Concomitant]
  3. PROPACET 100 [Concomitant]
  4. ISOSORBIDE DINITRATE [Concomitant]
  5. METOPROLOL SUCCINATE [Concomitant]
  6. LOSARTAN (LOSARTAN) [Concomitant]
  7. HEPARIN-FRACTION, SODIUM SALT (HEPARIN-FRACTION, SODIUM SALT) [Concomitant]
  8. FAMOTIDINE [Concomitant]
  9. ACETYLSALICYLIC ACID SRT [Concomitant]
  10. MULTIVITAMIN [Concomitant]
  11. CALCIUM (CALCIUM) [Concomitant]

REACTIONS (8)
  - CARDIAC DEATH [None]
  - COMA [None]
  - FEEDING DISORDER [None]
  - GASTRITIS EROSIVE [None]
  - PERITONITIS [None]
  - PULSE ABSENT [None]
  - RESPIRATORY ARREST [None]
  - TREATMENT NONCOMPLIANCE [None]
